FAERS Safety Report 9311655 (Version 2)
Quarter: 2013Q2

REPORT INFORMATION
  Report Type: Spontaneous
  Country: PL (occurrence: PL)
  Receive Date: 20130528
  Receipt Date: 20130626
  Transmission Date: 20140414
  Serious: Yes (Hospitalization)
  Sender: FDA-Public Use
  Company Number: PL-SANOFI-AVENTIS-2013SA052356

PATIENT
  Age: 8 Year
  Sex: Male
  Weight: 35 kg

DRUGS (13)
  1. AMIODARONE [Suspect]
     Indication: ARRHYTHMIA
     Route: 042
     Dates: start: 20101111, end: 20101114
  2. AMIODARONE [Suspect]
     Indication: ARRHYTHMIA
     Route: 042
     Dates: start: 20101116, end: 20101116
  3. AMIODARONE [Suspect]
     Indication: ARRHYTHMIA
     Route: 042
     Dates: start: 20101114, end: 20101116
  4. AMIODARONE [Suspect]
     Indication: ARRHYTHMIA
     Route: 042
     Dates: start: 20101117, end: 20101117
  5. AMIODARONE [Suspect]
     Indication: ARRHYTHMIA
     Route: 042
     Dates: start: 20101118, end: 20101118
  6. AMIODARONE [Suspect]
     Indication: ARRHYTHMIA
     Route: 042
     Dates: start: 20101120, end: 20101122
  7. AMIODARONE [Suspect]
     Indication: ARRHYTHMIA
     Route: 048
     Dates: start: 20101221, end: 20110105
  8. AMIODARONE [Suspect]
     Indication: ARRHYTHMIA
     Route: 042
     Dates: start: 20101123, end: 20101124
  9. MULTAQ [Suspect]
     Indication: ARRHYTHMIA
     Route: 065
     Dates: start: 20101126, end: 20101221
  10. COROTROPE [Suspect]
     Indication: VENTRICULAR FIBRILLATION
     Dosage: DOSE AND RATE: 0.75 MCG/KG/MIN
     Route: 042
     Dates: start: 20101111, end: 20110107
  11. COROTROPE [Suspect]
     Indication: VENTRICULAR FIBRILLATION
     Dosage: DOSE AND RATE: 0.50 MCG/KG/MIN
     Route: 042
     Dates: start: 20110107, end: 20110112
  12. COROTROPE [Suspect]
     Indication: VENTRICULAR FIBRILLATION
     Dosage: DOSE AND RATE: 0.375 MCG/KG/MIN
     Route: 042
     Dates: start: 20110112, end: 20110114
  13. ADRENERGIC AGENTS, CARDIAC [Concomitant]
     Dates: start: 2010

REACTIONS (3)
  - Supraventricular tachycardia [Recovering/Resolving]
  - Drug ineffective [Unknown]
  - Off label use [Unknown]
